FAERS Safety Report 4964962-6 (Version None)
Quarter: 2006Q1

REPORT INFORMATION
  Report Type: 
  Country: None (occurrence: None)
  Receive Date: 20060201
  Receipt Date: 20051221
  Transmission Date: 20060701
  Serious: No
  Sender: FDA-Public Use
  Company Number: FACT0500741

PATIENT
  Age: 79 Year
  Sex: Female
  Weight: 54.4 kg

DRUGS (5)
  1. FACTIVE [Suspect]
     Indication: RESPIRATORY TRACT INFECTION BACTERIAL
     Dosage: 320 MG, QD, ORAL
     Route: 048
     Dates: start: 20051220, end: 20051220
  2. TOPROL-XL [Concomitant]
  3. RELAFEN [Concomitant]
  4. OCUVITE (ASCORBIC ACID, RETINOL, TOCOPHEROL) [Concomitant]
  5. FISH OIL [Concomitant]

REACTIONS (1)
  - DIARRHOEA [None]
